FAERS Safety Report 9389012 (Version 1)
Quarter: 2013Q3

REPORT INFORMATION
  Report Type: Spontaneous
  Country: AU (occurrence: AU)
  Receive Date: 20130708
  Receipt Date: 20130708
  Transmission Date: 20140515
  Serious: Yes (Disabling, Other)
  Sender: FDA-Public Use
  Company Number: AU-PFIZER INC-2013145459

PATIENT
  Age: 85 Year
  Sex: Female
  Weight: 60 kg

DRUGS (8)
  1. LYRICA [Suspect]
     Indication: BACK PAIN
     Dosage: UNK
  2. LYRICA [Suspect]
     Dosage: 150 MG, 2X/DAY
     Route: 048
     Dates: start: 20130413
  3. ATORVASTATIN [Concomitant]
     Dosage: 10 MG, 1X/DAY
  4. ASASANTIN [Concomitant]
     Dosage: 200/25, TWICE DAILY
  5. PANADOL OSTEO [Concomitant]
     Dosage: 1 TO 2, THREE TIMES DAILY, AS NEEDED
  6. ATACAND [Concomitant]
     Dosage: 8 MG, 1X/DAY
  7. FISH OIL [Concomitant]
     Dosage: 1000,  1X/DAY
  8. MACUVISION [Concomitant]
     Dosage: TWICE DAILY

REACTIONS (5)
  - Somnolence [Unknown]
  - Hypokinesia [Recovered/Resolved]
  - Feeling abnormal [Recovered/Resolved]
  - Gait disturbance [Recovered/Resolved]
  - Activities of daily living impaired [Recovered/Resolved]
